FAERS Safety Report 7274305-3 (Version None)
Quarter: 2011Q1

REPORT INFORMATION
  Report Type: 
  Country: None (occurrence: None)
  Receive Date: 20110131
  Receipt Date: 20110131
  Transmission Date: 20110831
  Serious: No
  Sender: FDA-Public Use
  Company Number: None

PATIENT
  Sex: Male
  Weight: 70.7611 kg

DRUGS (7)
  1. TRIPLA [Concomitant]
  2. SEROQUEL [Suspect]
     Indication: SCHIZOPHRENIA
     Dosage: 200MG PO QHS
     Dates: start: 20081001, end: 20101101
  3. AZITHROMYCIN [Concomitant]
  4. LAPERAUUDE [Concomitant]
  5. DEPAKOTE [Concomitant]
  6. VIAGRA [Concomitant]
  7. DAPSONE [Concomitant]

REACTIONS (1)
  - DIABETES MELLITUS [None]
